FAERS Safety Report 20408416 (Version 4)
Quarter: 2022Q3

REPORT INFORMATION
  Report Type: Report from Study
  Country: US (occurrence: US)
  Receive Date: 20220201
  Receipt Date: 20220627
  Transmission Date: 20221027
  Serious: No
  Sender: FDA-Public Use
  Company Number: US-NOVARTISTESTPH-NVSC2022US020870

PATIENT
  Sex: Male

DRUGS (1)
  1. COSENTYX [Suspect]
     Active Substance: SECUKINUMAB
     Indication: Psoriasis
     Dosage: 300 MG, QW
     Route: 058
     Dates: end: 20211223

REACTIONS (8)
  - COVID-19 [Recovering/Resolving]
  - Cough [Recovering/Resolving]
  - Injection site mass [Unknown]
  - Hypersensitivity [Unknown]
  - Injection site vesicles [Unknown]
  - Gait disturbance [Unknown]
  - Abdominal pain upper [Unknown]
  - Pain [Unknown]
